FAERS Safety Report 13659729 (Version 3)
Quarter: 2017Q4

REPORT INFORMATION
  Report Type: Spontaneous
  Country: US (occurrence: US)
  Receive Date: 20170616
  Receipt Date: 20171006
  Transmission Date: 20180320
  Serious: No
  Sender: FDA-Public Use
  Company Number: US-GLAXOSMITHKLINE-US2017091552

PATIENT
  Sex: Female
  Weight: 106 kg

DRUGS (1)
  1. ADVAIR DISKUS [Suspect]
     Active Substance: FLUTICASONE PROPIONATE\SALMETEROL XINAFOATE
     Indication: PRODUCT USED FOR UNKNOWN INDICATION
     Dosage: UNK
     Route: 055
     Dates: start: 20170718, end: 20170725

REACTIONS (6)
  - Dysphonia [Unknown]
  - Intercepted medication error [Unknown]
  - Visual impairment [Unknown]
  - Concussion [Unknown]
  - Vision blurred [Unknown]
  - Road traffic accident [Unknown]
